FAERS Safety Report 14168094 (Version 2)
Quarter: 2017Q4

REPORT INFORMATION
  Report Type: Spontaneous
  Country: US (occurrence: US)
  Receive Date: 20171108
  Receipt Date: 20171123
  Transmission Date: 20180321
  Serious: Yes (Other)
  Sender: FDA-Public Use
  Company Number: US-AMGEN-USASP2017167000

PATIENT

DRUGS (4)
  1. LEUCOVORIN. [Concomitant]
     Active Substance: LEUCOVORIN
     Indication: COLORECTAL CANCER
     Dosage: UNK
  2. VECTIBIX [Suspect]
     Active Substance: PANITUMUMAB
     Indication: COLORECTAL CANCER
     Dosage: UNK
     Route: 065
  3. 5-FU [Concomitant]
     Active Substance: FLUOROURACIL
     Indication: COLORECTAL CANCER
     Dosage: UNK
  4. OXALIPLATIN. [Concomitant]
     Active Substance: OXALIPLATIN
     Indication: COLORECTAL CANCER
     Dosage: UNK

REACTIONS (1)
  - Malignant neoplasm progression [Not Recovered/Not Resolved]
